FAERS Safety Report 15955093 (Version 2)
Quarter: 2019Q1

REPORT INFORMATION
  Report Type: Spontaneous
  Country: US (occurrence: US)
  Receive Date: 20190213
  Receipt Date: 20190326
  Transmission Date: 20190417
  Serious: No
  Sender: FDA-Public Use
  Company Number: US-PFIZER INC-2019057846

PATIENT
  Age: 10 Year
  Sex: Male
  Weight: 30.84 kg

DRUGS (3)
  1. GENOTROPIN MQ [Suspect]
     Active Substance: SOMATROPIN
     Indication: WILLIAMS SYNDROME
     Dosage: 0.8 MG, 1X/DAY, (0.8 MG IN BUTTOCKS EVERY EVENING)
  2. GENOTROPIN MQ [Suspect]
     Active Substance: SOMATROPIN
     Dosage: 0.8 MG, DAILY
     Dates: start: 20091110
  3. LEVOTHYROXINE. [Concomitant]
     Active Substance: LEVOTHYROXINE
     Indication: HYPOTHYROIDISM
     Dosage: 1/2 TABLET BY MOUTH ONCE A DAY
     Route: 048

REACTIONS (18)
  - Vitamin D decreased [Unknown]
  - Mean cell haemoglobin concentration decreased [Unknown]
  - Underweight [Unknown]
  - Anion gap decreased [Unknown]
  - Blood glucose decreased [Unknown]
  - Blood creatinine decreased [Unknown]
  - Haemoglobin increased [Unknown]
  - Blood calcium decreased [Unknown]
  - Haemoglobin distribution width decreased [Unknown]
  - Product use in unapproved indication [Unknown]
  - Carbon dioxide decreased [Unknown]
  - Platelet count decreased [Unknown]
  - White blood cell count decreased [Unknown]
  - Red blood cell count decreased [Unknown]
  - Mean platelet volume increased [Unknown]
  - Mean cell volume increased [Unknown]
  - Mean cell haemoglobin decreased [Unknown]
  - Blood iron decreased [Unknown]

NARRATIVE: CASE EVENT DATE: 20160210
